FAERS Safety Report 11175982 (Version 23)
Quarter: 2018Q3

REPORT INFORMATION
  Report Type: Report from Study
  Country: CA (occurrence: CA)
  Receive Date: 20150609
  Receipt Date: 20180911
  Transmission Date: 20181010
  Serious: Yes (Hospitalization, Other)
  Sender: FDA-Public Use
  Company Number: CA-INCYTE CORPORATION-2015IN001312

PATIENT

DRUGS (13)
  1. JAKAVI [Suspect]
     Active Substance: RUXOLITINIB
     Dosage: 5 MG, BID
     Route: 048
     Dates: start: 201609
  2. JAKAVI [Suspect]
     Active Substance: RUXOLITINIB
     Dosage: 10 MG  BID (HALF OF A 20 MG PILL)
     Route: 048
  3. COUMADINE [Concomitant]
     Active Substance: WARFARIN SODIUM
     Indication: PRODUCT USED FOR UNKNOWN INDICATION
     Dosage: UNK
     Route: 065
  4. FOLIC ACID. [Concomitant]
     Active Substance: FOLIC ACID
     Indication: PRODUCT USED FOR UNKNOWN INDICATION
     Dosage: UNK
     Route: 065
     Dates: start: 200611, end: 201502
  5. INNOHEP [Concomitant]
     Active Substance: TINZAPARIN SODIUM
     Indication: PRODUCT USED FOR UNKNOWN INDICATION
     Dosage: UNK
     Route: 058
  6. JAKAVI [Suspect]
     Active Substance: RUXOLITINIB
     Dosage: 5 MG, QD
     Route: 048
     Dates: start: 20140101
  7. TYLENOL [Concomitant]
     Active Substance: ACETAMINOPHEN
     Indication: URINARY INCONTINENCE
  8. TYLENOL [Concomitant]
     Active Substance: ACETAMINOPHEN
     Indication: DYSURIA
  9. BABY ASPIRIN [Concomitant]
     Active Substance: ASPIRIN
     Indication: PRODUCT USED FOR UNKNOWN INDICATION
     Dosage: UNK UNK, QD
     Route: 065
  10. BABY ASPIRIN [Concomitant]
     Active Substance: ASPIRIN
     Dosage: UNK, QOD
     Route: 065
  11. JAKAVI [Suspect]
     Active Substance: RUXOLITINIB
     Indication: MYELOFIBROSIS
     Dosage: 15 MG, BID
     Route: 048
     Dates: start: 201401
  12. TYLENOL [Concomitant]
     Active Substance: ACETAMINOPHEN
     Indication: ARTHRITIS
     Dosage: UNK
     Route: 065
  13. TYLENOL [Concomitant]
     Active Substance: ACETAMINOPHEN
     Indication: BLADDER PAIN

REACTIONS (68)
  - Cough [Unknown]
  - Feeding disorder [Unknown]
  - Asthenia [Recovering/Resolving]
  - Pyrexia [Recovered/Resolved]
  - Tooth loss [Unknown]
  - Inflammation [Unknown]
  - Platelet count decreased [Unknown]
  - Lung disorder [Unknown]
  - Wheezing [Unknown]
  - Gingival erythema [Unknown]
  - Asthma [Unknown]
  - Transfusion reaction [Unknown]
  - Bronchitis [Unknown]
  - Contusion [Unknown]
  - Muscle spasms [Recovered/Resolved]
  - Renal impairment [Unknown]
  - Limb injury [Unknown]
  - Bladder disorder [Unknown]
  - Weight decreased [Unknown]
  - Tinnitus [Unknown]
  - Urinary tract disorder [Recovering/Resolving]
  - Fall [Unknown]
  - Night sweats [Unknown]
  - Decreased appetite [Unknown]
  - Phlebitis [Unknown]
  - Abdominal pain upper [Unknown]
  - Peripheral venous disease [Unknown]
  - Chronic obstructive pulmonary disease [Unknown]
  - Thrombosis [Unknown]
  - Escherichia urinary tract infection [Unknown]
  - Headache [Unknown]
  - Nausea [Unknown]
  - Thrombophlebitis [Recovered/Resolved]
  - White blood cell count increased [Unknown]
  - Abdominal discomfort [Unknown]
  - Abdominal pain [Unknown]
  - Burning sensation [Unknown]
  - Cataract [Unknown]
  - Skin oedema [Unknown]
  - Escherichia bacteraemia [Unknown]
  - Blindness [Recovered/Resolved]
  - Dyspnoea [Recovering/Resolving]
  - Bladder pain [Recovering/Resolving]
  - Cellulitis [Recovered/Resolved]
  - Diarrhoea [Recovered/Resolved]
  - Feeling abnormal [Unknown]
  - Haemoglobin decreased [Unknown]
  - Blood pressure increased [Unknown]
  - Bone pain [Unknown]
  - Splenic infarction [Unknown]
  - Hepatomegaly [Unknown]
  - Urinary incontinence [Recovering/Resolving]
  - Splenomegaly [Recovering/Resolving]
  - Hypoacusis [Unknown]
  - Skin discolouration [Unknown]
  - Wrong technique in product usage process [Unknown]
  - Pollakiuria [Not Recovered/Not Resolved]
  - Sleep disorder due to general medical condition, insomnia type [Unknown]
  - Cellulitis [Unknown]
  - Myelofibrosis [Unknown]
  - Pain in extremity [Unknown]
  - Micturition urgency [Unknown]
  - Fatigue [Recovering/Resolving]
  - Oedema peripheral [Recovered/Resolved]
  - Hepatic pain [Unknown]
  - Dysuria [Recovering/Resolving]
  - Platelet count increased [Unknown]
  - Red blood cell count decreased [Unknown]

NARRATIVE: CASE EVENT DATE: 2014
